FAERS Safety Report 9922424 (Version 1)
Quarter: 2014Q1

REPORT INFORMATION
  Report Type: Spontaneous
  Country: US (occurrence: US)
  Receive Date: 20140225
  Receipt Date: 20140225
  Transmission Date: 20141002
  Serious: Yes (Death)
  Sender: FDA-Public Use
  Company Number: CHPA2014US002801

PATIENT
  Age: 60 Year
  Sex: Male

DRUGS (2)
  1. KERI ORIGINAL [Suspect]
     Indication: PSORIASIS
     Dosage: UNK, UNK
     Route: 061
     Dates: start: 1995, end: 2009
  2. KERI ORIGINAL [Suspect]
     Indication: OFF LABEL USE

REACTIONS (2)
  - Death [Fatal]
  - Therapeutic response unexpected [Unknown]
